FAERS Safety Report 21284724 (Version 1)
Quarter: 2022Q3

REPORT INFORMATION
  Report Type: Spontaneous
  Country: US (occurrence: US)
  Receive Date: 20220902
  Receipt Date: 20220902
  Transmission Date: 20221026
  Serious: No
  Sender: FDA-Public Use
  Company Number: ENDG22-03959

PATIENT
  Sex: Female
  Weight: 55.34 kg

DRUGS (6)
  1. PREDNISONE [Suspect]
     Active Substance: PREDNISONE
     Indication: Drug hypersensitivity
     Dosage: UNK UNKNOWN, UNKNOWN
     Route: 065
     Dates: start: 2021
  2. CRESTOR [Concomitant]
     Active Substance: ROSUVASTATIN CALCIUM
     Indication: Blood cholesterol increased
     Dosage: 10 MG, UNKNOWN
     Route: 065
     Dates: start: 2002
  3. KLONOPIN [Concomitant]
     Active Substance: CLONAZEPAM
     Indication: Insomnia
     Dosage: 0.5 MG, UNKNOWN
     Route: 065
  4. PROTONIX                           /00661201/ [Concomitant]
     Indication: Gastrooesophageal reflux disease
     Dosage: 20 MG, UNKNOWN
     Route: 065
  5. PROTONIX                           /00661201/ [Concomitant]
     Dosage: 40 MG, UNKNOWN
     Route: 065
  6. CARDIZEM                           /00489701/ [Concomitant]
     Indication: Supraventricular tachycardia
     Dosage: UNK UNKNOWN, UNKNOWN (60 MG IN MORNING AND 60 MG AT NIGHT)
     Route: 065
     Dates: start: 2018

REACTIONS (1)
  - Tachycardia [Unknown]

NARRATIVE: CASE EVENT DATE: 20210101
